FAERS Safety Report 14964387 (Version 10)
Quarter: 2018Q4

REPORT INFORMATION
  Report Type: Report from Study
  Country: DE (occurrence: DE)
  Receive Date: 20180601
  Receipt Date: 20181011
  Transmission Date: 20190204
  Serious: Yes (Other)
  Sender: FDA-Public Use
  Company Number: DE-ASTELLAS-2018US025249

PATIENT
  Age: 12 Year
  Sex: Male
  Weight: 30 kg

DRUGS (3)
  1. AMPHOTERICIN B, LIPOSOME [Suspect]
     Active Substance: AMPHOTERICIN B
     Indication: ANTIFUNGAL PROPHYLAXIS
     Route: 048
     Dates: start: 20160905
  2. GLIVEC [Suspect]
     Active Substance: IMATINIB MESYLATE
     Indication: PHILADELPHIA CHROMOSOME POSITIVE
     Dosage: UNK UNK, UNKNOWN FREQ.
     Route: 065
  3. GLIVEC [Suspect]
     Active Substance: IMATINIB MESYLATE
     Indication: ACUTE LYMPHOCYTIC LEUKAEMIA
     Route: 065
     Dates: start: 20160913

REACTIONS (18)
  - Febrile neutropenia [Recovered/Resolved]
  - Gastroenteritis [Recovered/Resolved]
  - Gastroenteritis [Recovered/Resolved]
  - Pyrexia [Recovered/Resolved]
  - Nasopharyngitis [Unknown]
  - Hypokalaemia [Recovered/Resolved]
  - Febrile neutropenia [Recovered/Resolved]
  - Paronychia [Recovered/Resolved]
  - Diarrhoea [Unknown]
  - Hypomagnesaemia [Recovered/Resolved]
  - Febrile neutropenia [Recovered/Resolved]
  - Febrile neutropenia [Recovered/Resolved]
  - Haematoma [Unknown]
  - Mucosal inflammation [Recovered/Resolved]
  - Stomatitis [Recovered/Resolved]
  - Mucosal inflammation [Recovered/Resolved]
  - Febrile neutropenia [Recovered/Resolved]
  - Febrile neutropenia [Recovered/Resolved]

NARRATIVE: CASE EVENT DATE: 20161030
